FAERS Safety Report 25874256 (Version 1)
Quarter: 2025Q4

REPORT INFORMATION
  Report Type: Spontaneous
  Country: CN (occurrence: CN)
  Receive Date: 20251002
  Receipt Date: 20251002
  Transmission Date: 20260118
  Serious: Yes (Other)
  Sender: ALEXION PHARMACEUTICALS
  Company Number: CN-ASTRAZENECA-202509CHN025700CN

PATIENT
  Age: 44 Year
  Sex: Male
  Weight: 64 kg

DRUGS (1)
  1. DAPAGLIFLOZIN [Suspect]
     Active Substance: DAPAGLIFLOZIN
     Indication: Diabetic nephropathy
     Dosage: 10 MILLIGRAM, QD
     Dates: start: 20241114, end: 20250715

REACTIONS (1)
  - Male sexual dysfunction [Recovering/Resolving]

NARRATIVE: CASE EVENT DATE: 20250515
